FAERS Safety Report 8112395-6 (Version None)
Quarter: 2011Q4

REPORT INFORMATION
  Report Type: 
  Country: None (occurrence: None)
  Receive Date: 20111223
  Receipt Date: 20110404
  Transmission Date: 20120403
  Serious: Yes (Hospitalization)
  Sender: FDA-Public Use
  Company Number: PHHY2011US12246

PATIENT
  Sex: Male

DRUGS (1)
  1. CLOZARIL [Suspect]

REACTIONS (1)
  - DRUG INEFFECTIVE [None]
